FAERS Safety Report 12778893 (Version 1)
Quarter: 2016Q3

REPORT INFORMATION
  Report Type: Spontaneous
  Country: US (occurrence: US)
  Receive Date: 20160926
  Receipt Date: 20160926
  Transmission Date: 20161109
  Serious: Yes (Other)
  Sender: FDA-Public Use
  Company Number: US-009507513-1609USA008466

PATIENT
  Sex: Female

DRUGS (1)
  1. NUVARING [Suspect]
     Active Substance: ETHINYL ESTRADIOL\ETONOGESTREL
     Dosage: UNK, 30 DAYS IN CONTINUOUSLY AND THEN INSERT A NEW RING WITH NO BREAK
     Route: 067

REACTIONS (5)
  - Pregnancy with contraceptive device [Unknown]
  - Product use issue [Unknown]
  - Off label use of device [Unknown]
  - Menstrual disorder [Unknown]
  - Unintended pregnancy [Unknown]
